FAERS Safety Report 7358341-4 (Version None)
Quarter: 2011Q1

REPORT INFORMATION
  Report Type: 
  Country: None (occurrence: None)
  Receive Date: 20110317
  Receipt Date: 20110304
  Transmission Date: 20110831
  Serious: Yes (Hospitalization, Other)
  Sender: FDA-Public Use
  Company Number: PHHY2010MX44948

PATIENT
  Age: 75 Year
  Sex: Male

DRUGS (2)
  1. OBINESE [Concomitant]
  2. EXFORGE [Suspect]
     Indication: HYPERTENSION
     Dosage: 160 MG OF VALS AND 5 MG OF AMLO PER DAY
     Dates: start: 20090115

REACTIONS (2)
  - THYROID NEOPLASM [None]
  - BENIGN SOFT TISSUE NEOPLASM [None]
